FAERS Safety Report 7758970-X (Version None)
Quarter: 2011Q3

REPORT INFORMATION
  Report Type: 
  Country: None (occurrence: None)
  Receive Date: 20110919
  Receipt Date: 20110908
  Transmission Date: 20111222
  Serious: Yes (Hospitalization)
  Sender: FDA-Public Use
  Company Number: UA-ASTRAZENECA-2011SE54303

PATIENT
  Age: 51 Year
  Sex: Female

DRUGS (3)
  1. QUETIAPINE [Suspect]
     Indication: SCHIZOPHRENIA
     Route: 048
     Dates: start: 20100531, end: 20100629
  2. QUETIAPINE [Suspect]
     Route: 048
     Dates: start: 20100830, end: 20101128
  3. QUETIAPINE [Suspect]
     Route: 048
     Dates: start: 20100630, end: 20100829

REACTIONS (1)
  - SCHIZOPHRENIA [None]
